FAERS Safety Report 7852361-9 (Version None)
Quarter: 2011Q4

REPORT INFORMATION
  Report Type: 
  Country: None (occurrence: None)
  Receive Date: 20111026
  Receipt Date: 20111017
  Transmission Date: 20120403
  Serious: Yes (Hospitalization)
  Sender: FDA-Public Use
  Company Number: BR-ASTRAZENECA-2011SE62645

PATIENT
  Age: 66 Year
  Sex: Female
  Weight: 62 kg

DRUGS (5)
  1. SERENATA [Concomitant]
     Route: 048
  2. ENTOCORT EC [Suspect]
     Indication: CROHN'S DISEASE
     Route: 048
     Dates: start: 20110716, end: 20111012
  3. OMEPRAZOLE [Suspect]
     Indication: GASTRITIS
     Route: 048
     Dates: start: 20090101
  4. CLONAZEPAM [Concomitant]
     Route: 048
  5. ATROVEN [Concomitant]
     Indication: OSTEOPOROSIS
     Route: 048
     Dates: start: 20110101

REACTIONS (5)
  - DRUG DOSE OMISSION [None]
  - DIARRHOEA [None]
  - STOMACH MASS [None]
  - ABDOMINAL PAIN [None]
  - INTESTINAL OBSTRUCTION [None]
